FAERS Safety Report 9825158 (Version 1)
Quarter: 2013Q4

REPORT INFORMATION
  Report Type: Spontaneous
  Country: US (occurrence: None)
  Receive Date: 20131031
  Receipt Date: 20131031
  Transmission Date: 20140711
  Serious: Yes (Other)
  Sender: FDA-Public Use
  Company Number: 2013S1000023

PATIENT
  Age: 36 Year
  Sex: Male
  Weight: 68 kg

DRUGS (4)
  1. KRYSTEXXA [Suspect]
     Indication: GOUT
  2. COLCHICINE (COLCHICINE) [Concomitant]
  3. AMLODIPINE (AMLODIPINE) [Concomitant]
  4. ANTIHYPERTENSIVES (ANTIHYPERTENSIVES) [Concomitant]

REACTIONS (1)
  - Infusion related reaction [None]
